FAERS Safety Report 6000232-5 (Version None)
Quarter: 2008Q4

REPORT INFORMATION
  Report Type: 
  Country: None (occurrence: None)
  Receive Date: 20081211
  Receipt Date: 20081211
  Transmission Date: 20090506
  Serious: Yes (Hospitalization)
  Sender: FDA-Public Use
  Company Number: None

PATIENT
  Sex: Male
  Weight: 89.8 kg

DRUGS (2)
  1. BUSULFAN [Suspect]
     Dosage: 287.2 MG
  2. CYCLOPHOSPHAMIDE [Suspect]
     Dosage: 17960 MG

REACTIONS (7)
  - CHEST PAIN [None]
  - DYSPNOEA [None]
  - LUNG DISORDER [None]
  - LUNG INFILTRATION [None]
  - NASAL FLARING [None]
  - OXYGEN SATURATION DECREASED [None]
  - PRODUCTIVE COUGH [None]
